FAERS Safety Report 23138310 (Version 1)
Quarter: 2023Q4

REPORT INFORMATION
  Report Type: Spontaneous
  Country: KR (occurrence: KR)
  Receive Date: 20231102
  Receipt Date: 20231102
  Transmission Date: 20240110
  Serious: Yes (Death)
  Sender: FDA-Public Use
  Company Number: KR-GLAXOSMITHKLINE-KR2023GSK151524

PATIENT

DRUGS (1)
  1. INCRUSE ELLIPTA [Suspect]
     Active Substance: UMECLIDINIUM BROMIDE
     Indication: Product used for unknown indication
     Dosage: 1 DF, QD
     Dates: start: 20210412, end: 20211210

REACTIONS (2)
  - Increased viscosity of bronchial secretion [Fatal]
  - Micturition disorder [Recovered/Resolved]

NARRATIVE: CASE EVENT DATE: 20211115
